FAERS Safety Report 6110068-2 (Version None)
Quarter: 2009Q1

REPORT INFORMATION
  Report Type: 
  Country: None (occurrence: None)
  Receive Date: 20090310
  Receipt Date: 20090112
  Transmission Date: 20090719
  Serious: No
  Sender: FDA-Public Use
  Company Number: A0763017A

PATIENT
  Sex: Male

DRUGS (2)
  1. NICORETTE [Suspect]
  2. BUPROPION [Suspect]
     Indication: DRUG USE FOR UNKNOWN INDICATION
     Dosage: 300MG UNKNOWN
     Route: 048

REACTIONS (10)
  - ASTHENIA [None]
  - DERMATITIS ALLERGIC [None]
  - DRUG INTERACTION [None]
  - FEELING ABNORMAL [None]
  - FEELING COLD [None]
  - HOT FLUSH [None]
  - INTENTIONAL DRUG MISUSE [None]
  - MUSCULAR WEAKNESS [None]
  - NERVOUS SYSTEM DISORDER [None]
  - TREMOR [None]
